FAERS Safety Report 10523584 (Version 4)
Quarter: 2015Q1

REPORT INFORMATION
  Report Type: Report from Study
  Country: AU (occurrence: AU)
  Receive Date: 20141017
  Receipt Date: 20150206
  Transmission Date: 20150720
  Serious: Yes (Hospitalization, Disabling, Other)
  Sender: FDA-Public Use
  Company Number: AU-AMGEN-AUSSP2014070684

PATIENT
  Age: 75 Year
  Sex: Male

DRUGS (2)
  1. XGEVA [Suspect]
     Active Substance: DENOSUMAB
     Indication: METASTASES TO BONE
     Dosage: 120 MG, Q4WK
     Route: 058
     Dates: start: 20140319
  2. DOCETAXEL. [Concomitant]
     Active Substance: DOCETAXEL
     Dosage: UNK UNK, Q3WK

REACTIONS (7)
  - Malaise [Not Recovered/Not Resolved]
  - Drug dose omission [Unknown]
  - Fatigue [Not Recovered/Not Resolved]
  - Hospitalisation [Unknown]
  - Adverse drug reaction [Recovered/Resolved]
  - Syncope [Not Recovered/Not Resolved]
  - Dyspnoea [Not Recovered/Not Resolved]
